FAERS Safety Report 9032557 (Version 1)
Quarter: 2013Q1

REPORT INFORMATION
  Report Type: Spontaneous
  Country: US (occurrence: US)
  Receive Date: 20130122
  Receipt Date: 20130122
  Transmission Date: 20140127
  Serious: No
  Sender: FDA-Public Use
  Company Number: US-PFIZER INC-2013023993

PATIENT
  Sex: Female

DRUGS (2)
  1. CHANTIX [Suspect]
     Dosage: UNK
     Route: 048
     Dates: start: 20130117
  2. TRAMADOL HCL [Suspect]
     Dosage: UNK

REACTIONS (3)
  - Lip blister [Unknown]
  - Oral herpes [Unknown]
  - Rash [Unknown]
